FAERS Safety Report 5164366-X (Version None)
Quarter: 2006Q4

REPORT INFORMATION
  Report Type: 
  Country: None (occurrence: None)
  Receive Date: 20061129
  Receipt Date: 20061129
  Transmission Date: 20070319
  Serious: Yes (Other)
  Sender: FDA-Public Use
  Company Number: None

PATIENT
  Age: 83 Year
  Sex: Female
  Weight: 72.5755 kg

DRUGS (2)
  1. SEROQUEL [Suspect]
     Indication: HALLUCINATION
     Dosage: ONE  BEDTIME  ORALLY
     Route: 048
     Dates: start: 20060901
  2. NAMENDA [Concomitant]

REACTIONS (2)
  - ABASIA [None]
  - FALL [None]
